FAERS Safety Report 11884543 (Version 2)
Quarter: 2016Q1

REPORT INFORMATION
  Report Type: Report from Study
  Country: CA (occurrence: CA)
  Receive Date: 20160104
  Receipt Date: 20160107
  Transmission Date: 20160526
  Serious: Yes (Other)
  Sender: FDA-Public Use
  Company Number: CA-ROCHE-1146931

PATIENT
  Age: 33 Year
  Sex: Female
  Weight: 60 kg

DRUGS (7)
  1. ACTEMRA [Suspect]
     Active Substance: TOCILIZUMAB
     Route: 042
     Dates: start: 20140813, end: 20140813
  2. METHOTREXATE [Concomitant]
     Active Substance: METHOTREXATE
  3. ACTEMRA [Suspect]
     Active Substance: TOCILIZUMAB
     Route: 042
     Dates: start: 20101217
  4. ACTEMRA [Suspect]
     Active Substance: TOCILIZUMAB
     Dosage: DOSE INCREASED TO 480 MG
     Route: 042
  5. VITAMIN C [Concomitant]
     Active Substance: ASCORBIC ACID
  6. ADVIL [Concomitant]
     Active Substance: IBUPROFEN
  7. ACTEMRA [Suspect]
     Active Substance: TOCILIZUMAB
     Indication: RHEUMATOID ARTHRITIS
     Route: 042
     Dates: start: 20081201

REACTIONS (8)
  - Maternal exposure before pregnancy [Unknown]
  - Blood pressure diastolic decreased [Unknown]
  - Red blood cell sedimentation rate decreased [Unknown]
  - Nasopharyngitis [Unknown]
  - Rheumatoid arthritis [Unknown]
  - Weight increased [Unknown]
  - Blood urine present [Recovered/Resolved]
  - Hypotension [Unknown]

NARRATIVE: CASE EVENT DATE: 2012
